FAERS Safety Report 16690363 (Version 1)
Quarter: 2019Q3

REPORT INFORMATION
  Report Type: Spontaneous
  Country: US (occurrence: US)
  Receive Date: 20190810
  Receipt Date: 20190810
  Transmission Date: 20191004
  Serious: Yes (Hospitalization)
  Sender: FDA-Public Use
  Company Number: US-UNITED THERAPEUTICS-UNT-2019-013355

PATIENT
  Age: 68 Year
  Sex: Female
  Weight: 82.86 kg

DRUGS (1)
  1. ORENITRAM [Suspect]
     Active Substance: TREPROSTINIL
     Indication: PULMONARY ARTERIAL HYPERTENSION
     Dosage: 1 MG, TID
     Route: 048
     Dates: start: 20190304

REACTIONS (2)
  - Pulmonary arterial pressure increased [Unknown]
  - Dialysis related complication [Unknown]

NARRATIVE: CASE EVENT DATE: 2019
